FAERS Safety Report 7309422-2 (Version None)
Quarter: 2011Q1

REPORT INFORMATION
  Report Type: 
  Country: None (occurrence: None)
  Receive Date: 20110223
  Receipt Date: 20110214
  Transmission Date: 20110831
  Serious: Yes (Hospitalization)
  Sender: FDA-Public Use
  Company Number: JP-AMGEN-US432610

PATIENT
  Age: 45 Year
  Sex: Female
  Weight: 54 kg

DRUGS (11)
  1. CORTICOSTEROIDS [Concomitant]
     Indication: PROPHYLAXIS
     Route: 065
  2. OXYCONTIN [Concomitant]
     Route: 048
  3. FLUOROURACIL [Concomitant]
     Dosage: 1920 MG/M2, Q2WK
     Route: 041
     Dates: start: 20100809, end: 20100811
  4. MYSER [Concomitant]
     Route: 062
  5. HIRUDOID SOFT [Concomitant]
     Route: 062
  6. LOCOID [Concomitant]
     Route: 062
  7. IRINOTECAN HYDROCHLORIDE [Concomitant]
     Indication: COLORECTAL CANCER
     Route: 041
     Dates: start: 20100809, end: 20100811
  8. ANTIHISTAMINES [Concomitant]
     Indication: PROPHYLAXIS
     Route: 065
  9. CALCIUM LEVOFOLINATE [Concomitant]
     Indication: COLORECTAL CANCER
     Route: 041
     Dates: start: 20100809, end: 20100811
  10. FLUOROURACIL [Concomitant]
     Indication: COLORECTAL CANCER
     Dosage: 320 MG/M2, Q2WK
     Route: 040
     Dates: start: 20100809, end: 20100811
  11. PANITUMUMAB [Suspect]
     Indication: COLORECTAL CANCER
     Dosage: 6 MG/KG, Q2WK
     Route: 041
     Dates: start: 20100809, end: 20101111

REACTIONS (4)
  - NEUTROPHIL COUNT DECREASED [None]
  - INFUSION RELATED REACTION [None]
  - DERMATITIS ACNEIFORM [None]
  - HYPOCALCAEMIA [None]
